FAERS Safety Report 5147667-0 (Version None)
Quarter: 2006Q4

REPORT INFORMATION
  Report Type: 
  Country: None (occurrence: None)
  Receive Date: 20061106
  Receipt Date: 20061031
  Transmission Date: 20070319
  Serious: Yes (Hospitalization, Other)
  Sender: FDA-Public Use
  Company Number: GBWYE380831OCT06

PATIENT
  Age: 15 Year
  Sex: Male

DRUGS (5)
  1. PIPERACILLIN AND TAZOBACTAM [Suspect]
     Indication: CYSTIC FIBROSIS
     Dosage: 4.5G INTRAVENOUS
     Route: 042
     Dates: start: 20061003, end: 20061007
  2. OMEPRAZOLE [Concomitant]
  3. URSO FALK [Concomitant]
  4. TOBRAMYCIN [Concomitant]
  5. CREON [Concomitant]

REACTIONS (6)
  - BACK PAIN [None]
  - CHEST PAIN [None]
  - DYSPNOEA [None]
  - HYPERHIDROSIS [None]
  - PAIN IN EXTREMITY [None]
  - PALPITATIONS [None]
